FAERS Safety Report 8954429 (Version 1)
Quarter: 2012Q4

REPORT INFORMATION
  Report Type: 
  Country: BR (occurrence: BR)
  Receive Date: 20121210
  Receipt Date: 20121210
  Transmission Date: 20130627
  Serious: Yes (Other)
  Sender: FDA-Public Use
  Company Number: BR-AMGEN-BRASP2012078770

PATIENT
  Age: 32 Year
  Sex: Female
  Weight: 82 kg

DRUGS (2)
  1. ENBREL [Suspect]
     Indication: RHEUMATOID ARTHRITIS
     Dosage: 25 mg, 2x/week
     Route: 058
     Dates: start: 201108
  2. METHOTREXATE [Concomitant]
     Dosage: 15 mg, UNK
     Route: 048

REACTIONS (1)
  - Urinary tract infection [Unknown]
